FAERS Safety Report 6655057-4 (Version None)
Quarter: 2010Q1

REPORT INFORMATION
  Report Type: 
  Country: None (occurrence: None)
  Receive Date: 20100329
  Receipt Date: 20100313
  Transmission Date: 20100710
  Serious: Yes (Hospitalization, Other)
  Sender: FDA-Public Use
  Company Number: US-JNJFOC-20090305721

PATIENT
  Age: 51 Year
  Sex: Female

DRUGS (1)
  1. LEVAQUIN [Suspect]
     Indication: BRONCHITIS
     Dosage: 500MGX 10 DAYS
     Route: 065

REACTIONS (4)
  - APLASTIC ANAEMIA [None]
  - MYELOID LEUKAEMIA [None]
  - NEURALGIA [None]
  - PYREXIA [None]
